FAERS Safety Report 7226267-2 (Version None)
Quarter: 2011Q1

REPORT INFORMATION
  Report Type: 
  Country: None (occurrence: None)
  Receive Date: 20110114
  Receipt Date: 20110105
  Transmission Date: 20110831
  Serious: Yes (Other)
  Sender: FDA-Public Use
  Company Number: PHHY2011JP01140

PATIENT
  Age: 6 Year
  Sex: Female

DRUGS (1)
  1. TACROLIMUS [Suspect]

REACTIONS (7)
  - CHRONIC MYELOID LEUKAEMIA [None]
  - HYPERTENSION [None]
  - ENCEPHALOPATHY [None]
  - ACUTE GRAFT VERSUS HOST DISEASE [None]
  - CONVULSION [None]
  - NUCLEAR MAGNETIC RESONANCE IMAGING ABNORMAL [None]
  - NEUROTOXICITY [None]
